FAERS Safety Report 10455386 (Version 1)
Quarter: 2014Q3

REPORT INFORMATION
  Report Type: Spontaneous
  Country: US (occurrence: None)
  Receive Date: 20140915
  Receipt Date: 20140915
  Transmission Date: 20150326
  Serious: No
  Sender: FDA-Public Use
  Company Number: None

PATIENT
  Age: 23 Year
  Sex: Male

DRUGS (15)
  1. DOCUSATE [Concomitant]
     Active Substance: DOCUSATE
  2. MULTIVITAMIN [Concomitant]
     Active Substance: VITAMINS
  3. FAMOTIDINE. [Concomitant]
     Active Substance: FAMOTIDINE
  4. LEVALBUTEROL [Concomitant]
     Active Substance: LEVALBUTEROL
  5. ONDANSETRON [Concomitant]
     Active Substance: ONDANSETRON
  6. OXANDROLONE. [Concomitant]
     Active Substance: OXANDROLONE
  7. BACLOFEN. [Concomitant]
     Active Substance: BACLOFEN
  8. SENNA [Concomitant]
     Active Substance: SENNA LEAF\SENNOSIDES\SENNOSIDES A AND B
  9. LORATADINE. [Concomitant]
     Active Substance: LORATADINE
  10. OXYCODONE [Concomitant]
     Active Substance: OXYCODONE
  11. BISACODYL. [Concomitant]
     Active Substance: BISACODYL
  12. HUMAN STOOL [Suspect]
     Active Substance: FECAL MICROBIOTA
     Indication: CLOSTRIDIUM DIFFICILE INFECTION
     Route: 048
     Dates: start: 20140626
  13. DANTROLENE [Concomitant]
     Active Substance: DANTROLENE
  14. LORAZEPAM. [Concomitant]
     Active Substance: LORAZEPAM
  15. PROMETHAZINE [Concomitant]
     Active Substance: PROMETHAZINE\PROMETHAZINE HYDROCHLORIDE

REACTIONS (5)
  - Giardia test positive [None]
  - Clostridium test positive [None]
  - Diarrhoea [None]
  - Suspected transmission of an infectious agent via product [None]
  - Culture stool positive [None]

NARRATIVE: CASE EVENT DATE: 20140731
